FAERS Safety Report 25630531 (Version 2)
Quarter: 2025Q3

REPORT INFORMATION
  Report Type: Spontaneous
  Country: US (occurrence: US)
  Receive Date: 20250801
  Receipt Date: 20250813
  Transmission Date: 20251020
  Serious: Yes (Other)
  Sender: AMGEN
  Company Number: US-AMGEN-USASP2025149114

PATIENT
  Age: 92 Year
  Sex: Female

DRUGS (3)
  1. PROLIA [Suspect]
     Active Substance: DENOSUMAB
     Indication: Product used for unknown indication
     Route: 065
     Dates: start: 202105
  2. FOSAMAX [Concomitant]
     Active Substance: ALENDRONATE SODIUM
  3. EVISTA [Concomitant]
     Active Substance: RALOXIFENE HYDROCHLORIDE

REACTIONS (12)
  - Pneumonia aspiration [Unknown]
  - Bone disorder [Unknown]
  - Rotator cuff syndrome [Unknown]
  - General symptom [Unknown]
  - Muscle disorder [Unknown]
  - Ill-defined disorder [Unknown]
  - Weight gain poor [Unknown]
  - Asthma [Unknown]
  - Blood pressure increased [Unknown]
  - Injection site pain [Unknown]
  - Pain [Unknown]
  - Cystitis [Unknown]

NARRATIVE: CASE EVENT DATE: 20210501
